FAERS Safety Report 5166071-2 (Version None)
Quarter: 2006Q4

REPORT INFORMATION
  Report Type: 
  Country: None (occurrence: None)
  Receive Date: 20061206
  Receipt Date: 20061120
  Transmission Date: 20070319
  Serious: Yes (Death)
  Sender: FDA-Public Use
  Company Number: JP-MERCK-0611USA06267

PATIENT
  Age: 67 Year
  Sex: Male
  Weight: 45 kg

DRUGS (3)
  1. STROMECTOL [Suspect]
     Indication: ACARODERMATITIS
     Route: 048
     Dates: start: 20061114, end: 20061114
  2. ZYRTEC [Concomitant]
     Indication: DERMATITIS EXFOLIATIVE
     Route: 048
     Dates: start: 20050101, end: 20061115
  3. POLARAMINE [Concomitant]
     Indication: DERMATITIS EXFOLIATIVE
     Route: 048
     Dates: start: 20050101, end: 20061115

REACTIONS (5)
  - CARDIAC FAILURE [None]
  - CARDIO-RESPIRATORY ARREST [None]
  - EYE ROLLING [None]
  - THERAPY NON-RESPONDER [None]
  - URINARY INCONTINENCE [None]
